FAERS Safety Report 5524208-7 (Version None)
Quarter: 2007Q4

REPORT INFORMATION
  Report Type: 
  Country: None (occurrence: None)
  Receive Date: 20071121
  Receipt Date: 20071114
  Transmission Date: 20080405
  Serious: Yes (Other)
  Sender: FDA-Public Use
  Company Number: US-PFIZER INC-2007075109

PATIENT
  Sex: Female
  Weight: 80 kg

DRUGS (4)
  1. LIPITOR [Suspect]
     Indication: BLOOD CHOLESTEROL
     Dates: start: 19980101, end: 20070101
  2. NITROSTAT [Concomitant]
  3. AMBIEN [Concomitant]
  4. VITAMINS [Concomitant]

REACTIONS (4)
  - ARTHRALGIA [None]
  - PAIN [None]
  - POOR QUALITY DRUG ADMINISTERED [None]
  - WALKING AID USER [None]
